FAERS Safety Report 9978327 (Version 1)
Quarter: 2014Q1

REPORT INFORMATION
  Report Type: Spontaneous
  Country: GB (occurrence: GB)
  Receive Date: 20140306
  Receipt Date: 20140306
  Transmission Date: 20141002
  Serious: Yes (Disabling, Other)
  Sender: FDA-Public Use
  Company Number: GB-BRISTOL-MYERS SQUIBB COMPANY-20330973

PATIENT
  Age: 82 Year
  Sex: Female

DRUGS (6)
  1. ELIQUIS [Suspect]
     Route: 048
     Dates: start: 20131211, end: 20131220
  2. AMITRIPTYLINE [Concomitant]
     Indication: POST HERPETIC NEURALGIA
     Dosage: REGULAR MEDICATION ON ADMISSION. TAKEN FOR OVER 30 YEARS.
     Dates: start: 19840101
  3. ASPIRIN [Concomitant]
     Dates: start: 19840101, end: 201312
  4. BENDROFLUMETHIAZIDE [Concomitant]
     Indication: HYPERTENSION
     Dates: start: 20131206
  5. LEVOTHYROXINE [Concomitant]
     Indication: HYPOTHYROIDISM
     Dosage: REGULAR MEDICATION ON ADMISSION. TAKEN FOR OVER 30 YEARS.
     Dates: start: 19840101
  6. XARELTO [Concomitant]
     Indication: ATRIAL FIBRILLATION
     Dosage: TOOK 2 DOSES BEFORE SWITCHING TO APIXABAN.

REACTIONS (5)
  - Confusional state [Recovered/Resolved]
  - Abnormal dreams [Recovered/Resolved]
  - Somnolence [Recovered/Resolved]
  - Aggression [Recovered/Resolved]
  - Hypersomnia [Recovered/Resolved]
